FAERS Safety Report 13605890 (Version 1)
Quarter: 2017Q2

REPORT INFORMATION
  Report Type: Spontaneous
  Country: US (occurrence: US)
  Receive Date: 20170602
  Receipt Date: 20170602
  Transmission Date: 20170830
  Serious: No
  Sender: FDA-Public Use
  Company Number: US-NOVEN PHARMACEUTICALS, INC.-US2016000672

PATIENT

DRUGS (4)
  1. DAYTRANA [Suspect]
     Active Substance: METHYLPHENIDATE
     Indication: ATTENTION DEFICIT/HYPERACTIVITY DISORDER
     Dosage: 40 MG (USING MULTIPLE PATCHES TO MAKE 40MG DOSAGE), UNKNOWN
     Route: 062
     Dates: start: 2011, end: 2016
  2. LAMICTAL [Concomitant]
     Active Substance: LAMOTRIGINE
  3. PROZAC [Concomitant]
     Active Substance: FLUOXETINE HYDROCHLORIDE
  4. CONCERTA [Concomitant]
     Active Substance: METHYLPHENIDATE HYDROCHLORIDE
     Indication: ATTENTION DEFICIT/HYPERACTIVITY DISORDER
     Dosage: 72 MG, USED YEARS AGO (UNSPECIFIED DATES)

REACTIONS (7)
  - Wrong technique in product usage process [Not Recovered/Not Resolved]
  - Drug dose omission [Unknown]
  - Defiant behaviour [Unknown]
  - Off label use [Unknown]
  - Prescribed overdose [Not Recovered/Not Resolved]
  - Somnolence [Unknown]
  - Therapeutic response unexpected [Not Recovered/Not Resolved]
